FAERS Safety Report 4851811-X (Version None)
Quarter: 2005Q4

REPORT INFORMATION
  Report Type: 
  Country: None (occurrence: None)
  Receive Date: 20051213
  Receipt Date: 20051201
  Transmission Date: 20060501
  Serious: Yes (Other)
  Sender: FDA-Public Use
  Company Number: 2005UW18135

PATIENT
  Age: 78 Year
  Sex: Male
  Weight: 65.3 kg

DRUGS (7)
  1. PULMICORT [Suspect]
     Indication: PNEUMONIA
     Route: 055
     Dates: start: 20050901
  2. SPRIVIA DILETRATE SR [Concomitant]
  3. MEVACOR [Concomitant]
  4. SINGULAIR [Concomitant]
  5. NORVASC [Concomitant]
  6. ZETIA [Concomitant]
  7. TYLENOL ARTHRITIS [Concomitant]

REACTIONS (2)
  - CONVULSION [None]
  - TREMOR [None]
